FAERS Safety Report 18501425 (Version 1)
Quarter: 2020Q4

REPORT INFORMATION
  Report Type: Spontaneous
  Country: IT (occurrence: IT)
  Receive Date: 20201113
  Receipt Date: 20201113
  Transmission Date: 20210114
  Serious: Yes (Hospitalization)
  Sender: FDA-Public Use
  Company Number: NVSC2020IT298604

PATIENT
  Age: 37 Year
  Sex: Female
  Weight: 42 kg

DRUGS (1)
  1. GILENYA [Suspect]
     Active Substance: FINGOLIMOD HYDROCHLORIDE
     Indication: MULTIPLE SCLEROSIS
     Dosage: 0.5 MG (2 DAY)
     Route: 048
     Dates: start: 20170719, end: 20200903

REACTIONS (2)
  - Warm type haemolytic anaemia [Recovered/Resolved]
  - Coombs positive haemolytic anaemia [Recovered/Resolved]
